FAERS Safety Report 10380930 (Version 2)
Quarter: 2014Q3

REPORT INFORMATION
  Report Type: Spontaneous
  Country: US (occurrence: None)
  Receive Date: 20140808
  Receipt Date: 20140925
  Transmission Date: 20150326
  Serious: No
  Sender: FDA-Public Use
  Company Number: DEP_02219_2014

PATIENT
  Sex: Female
  Weight: 68.04 kg

DRUGS (5)
  1. GRALISE [Suspect]
     Active Substance: GABAPENTIN
     Indication: PAIN
     Route: 048
     Dates: start: 2012, end: 2014
  2. GRALISE [Suspect]
     Active Substance: GABAPENTIN
     Indication: OFF LABEL USE
     Route: 048
     Dates: start: 2012, end: 2014
  3. VALIUM [Concomitant]
     Active Substance: DIAZEPAM
  4. GRALISE [Suspect]
     Active Substance: GABAPENTIN
     Indication: NERVE INJURY
     Route: 048
     Dates: start: 2012, end: 2014
  5. PERCOCET [Concomitant]
     Active Substance: ACETAMINOPHEN\OXYCODONE HYDROCHLORIDE

REACTIONS (10)
  - Joint injury [None]
  - Incorrect dose administered [None]
  - Fall [None]
  - Weight decreased [None]
  - Infection [None]
  - Gait disturbance [None]
  - Musculoskeletal disorder [None]
  - Unable to afford prescribed medication [None]
  - Large intestinal obstruction [None]
  - Intestinal perforation [None]

NARRATIVE: CASE EVENT DATE: 2012
